FAERS Safety Report 21434129 (Version 2)
Quarter: 2022Q4

REPORT INFORMATION
  Report Type: Spontaneous
  Country: US (occurrence: None)
  Receive Date: 20221010
  Receipt Date: 20221201
  Transmission Date: 20230113
  Serious: Yes (Hospitalization, Other)
  Sender: FDA-Public Use
  Company Number: US-Hikma Pharmaceuticals USA Inc.-US-H14001-22-02484

PATIENT
  Age: 53 Year
  Sex: Male
  Weight: 76.1 kg

DRUGS (9)
  1. METHOTREXATE [Suspect]
     Active Substance: METHOTREXATE
     Indication: Rheumatoid arthritis
     Dosage: UNKNOWN
     Route: 065
     Dates: start: 20220702
  2. METHOTREXATE [Suspect]
     Active Substance: METHOTREXATE
     Indication: Tenosynovitis
  3. PREDNISONE [Suspect]
     Active Substance: PREDNISONE
     Indication: Rheumatoid arthritis
     Dosage: UNKNOWN
     Route: 065
     Dates: start: 20220607
  4. PREDNISONE [Suspect]
     Active Substance: PREDNISONE
     Indication: Tenosynovitis
     Route: 065
  5. PREDNISONE [Suspect]
     Active Substance: PREDNISONE
     Route: 065
     Dates: start: 20220912
  6. DEZAPELISIB [Suspect]
     Active Substance: DEZAPELISIB
     Indication: Hodgkin^s disease
     Route: 048
     Dates: start: 20150519, end: 20220813
  7. ITACITINIB [Suspect]
     Active Substance: ITACITINIB
     Indication: Hodgkin^s disease
     Route: 048
     Dates: start: 20150519, end: 20220817
  8. ROSUVASTATIN [Concomitant]
     Active Substance: ROSUVASTATIN
     Indication: Product used for unknown indication
     Dosage: UNKNOWN
     Route: 065
     Dates: start: 2017, end: 20220912
  9. APIXABAN [Concomitant]
     Active Substance: APIXABAN
     Indication: Product used for unknown indication
     Dosage: UNKNOWN
     Route: 065
     Dates: start: 20220831

REACTIONS (20)
  - Pyrexia [Recovering/Resolving]
  - Pneumonia [Unknown]
  - Aspartate aminotransferase increased [Unknown]
  - Alanine aminotransferase increased [Unknown]
  - Lung disorder [Unknown]
  - Lung neoplasm malignant [Unknown]
  - Lower respiratory tract infection [Unknown]
  - Lung opacity [Unknown]
  - Pneumocystis jirovecii pneumonia [Recovered/Resolved with Sequelae]
  - Dyspnoea [Unknown]
  - Cough [Unknown]
  - Deep vein thrombosis [Unknown]
  - Pulmonary embolism [Unknown]
  - Condition aggravated [Unknown]
  - Blood alkaline phosphatase increased [Unknown]
  - Lactic acidosis [Unknown]
  - Fungal infection [Unknown]
  - Hypoxia [Unknown]
  - Abscess limb [Unknown]
  - Mycobacterium haemophilum infection [Unknown]

NARRATIVE: CASE EVENT DATE: 20220809
